FAERS Safety Report 8888508 (Version 1)
Quarter: 2012Q4

REPORT INFORMATION
  Report Type: Report from Study
  Country: JP (occurrence: JP)
  Receive Date: 20121106
  Receipt Date: 20121106
  Transmission Date: 20130627
  Serious: Yes (Hospitalization)
  Sender: FDA-Public Use
  Company Number: JP-VERTEX PHARMACEUTICAL INC.-AE-2012-008098

PATIENT
  Age: 65 Year
  Sex: Female

DRUGS (8)
  1. VX-950 [Suspect]
     Indication: CHRONIC HEPATITIS C
     Dosage: 2250 mg, qd
     Route: 048
     Dates: start: 20120229, end: 20120306
  2. VX-950 [Suspect]
     Dosage: 1500 mg, qd
     Route: 048
     Dates: start: 20120307, end: 20120424
  3. PEGINTERFERON ALFA-2B [Suspect]
     Indication: CHRONIC HEPATITIS C
     Dosage: 80 ?g, qw
     Route: 058
     Dates: start: 20120229, end: 20120424
  4. PEGINTERFERON ALFA-2B [Suspect]
     Dosage: 50 ?g, qw
     Route: 058
     Dates: start: 20120502
  5. RIBAVIRIN [Suspect]
     Indication: CHRONIC HEPATITIS C
     Dosage: 400 mg, qd
     Route: 048
     Dates: start: 20120229, end: 20120424
  6. RIBAVIRIN [Suspect]
     Dosage: 200 mg, qd
     Route: 048
     Dates: start: 20120502, end: 20120508
  7. RIBAVIRIN [Suspect]
     Dosage: 100 mg, qd
     Route: 048
     Dates: start: 20120509, end: 20120522
  8. RIBAVIRIN [Suspect]
     Dosage: 200 mg, qd
     Route: 048
     Dates: start: 20120523

REACTIONS (1)
  - Decreased appetite [Recovered/Resolved]
